FAERS Safety Report 4596602-2 (Version None)
Quarter: 2005Q1

REPORT INFORMATION
  Report Type: 
  Country: None (occurrence: None)
  Receive Date: 20050228
  Receipt Date: 20050211
  Transmission Date: 20050727
  Serious: Yes (Hospitalization)
  Sender: FDA-Public Use
  Company Number: Q04-008

PATIENT
  Age: 53 Year
  Sex: Male
  Weight: 102 kg

DRUGS (7)
  1. QUADRAMET [Suspect]
     Indication: BONE CANCER METASTATIC
     Dosage: 101.0 MC1
     Dates: start: 20040513, end: 20050225
  2. QUADRAMET [Suspect]
     Indication: PROSTATE CANCER
     Dosage: 101.0 MC1
     Dates: start: 20040513, end: 20050225
  3. INDOCIN [Concomitant]
  4. FLOMAX [Concomitant]
  5. TOPROIL [Concomitant]
  6. ATIVAN [Concomitant]
  7. NORVASC [Concomitant]

REACTIONS (13)
  - ANXIETY [None]
  - BENIGN PROSTATIC HYPERPLASIA [None]
  - BLADDER DISORDER [None]
  - GOUT [None]
  - HEADACHE [None]
  - HYDRONEPHROSIS [None]
  - HYPERTENSION [None]
  - LYMPHADENOPATHY [None]
  - NAUSEA [None]
  - RENAL FAILURE ACUTE [None]
  - SINUS DISORDER [None]
  - VISUAL DISTURBANCE [None]
  - VOMITING [None]
